FAERS Safety Report 11924831 (Version 1)
Quarter: 2016Q1

REPORT INFORMATION
  Report Type: Spontaneous
  Country: CA (occurrence: CA)
  Receive Date: 20160118
  Receipt Date: 20160118
  Transmission Date: 20160526
  Serious: Yes (Other)
  Sender: FDA-Public Use
  Company Number: CA-ABBVIE-16K-028-1539311-00

PATIENT
  Age: 48 Year
  Sex: Female

DRUGS (10)
  1. ENBREL [Suspect]
     Active Substance: ETANERCEPT
     Route: 058
  2. REMICADE [Suspect]
     Active Substance: INFLIXIMAB
     Indication: PRODUCT USED FOR UNKNOWN INDICATION
     Route: 042
  3. HUMIRA [Suspect]
     Active Substance: ADALIMUMAB
     Indication: PRODUCT USED FOR UNKNOWN INDICATION
     Route: 058
  4. CICLOSPORIN [Suspect]
     Active Substance: CYCLOSPORINE
     Indication: PSORIASIS
     Route: 065
  5. NEORAL [Suspect]
     Active Substance: CYCLOSPORINE
     Route: 048
  6. ENBREL [Suspect]
     Active Substance: ETANERCEPT
     Indication: PRODUCT USED FOR UNKNOWN INDICATION
     Route: 058
  7. REMICADE [Suspect]
     Active Substance: INFLIXIMAB
     Route: 042
  8. NEORAL [Suspect]
     Active Substance: CYCLOSPORINE
     Indication: PSORIASIS
     Route: 048
  9. ENBREL [Suspect]
     Active Substance: ETANERCEPT
     Route: 058
  10. ENBREL [Suspect]
     Active Substance: ETANERCEPT
     Route: 058

REACTIONS (17)
  - Glucose tolerance impaired [Recovered/Resolved]
  - Skin irritation [Recovered/Resolved]
  - Glycosylated haemoglobin increased [Recovered/Resolved]
  - Guttate psoriasis [Recovered/Resolved]
  - Arthritis [Recovered/Resolved]
  - Blood pressure increased [Recovered/Resolved]
  - Erythema [Recovered/Resolved]
  - Blood iron decreased [Recovered/Resolved]
  - Pneumonia [Recovered/Resolved]
  - Psoriasis [Recovered/Resolved]
  - Blood alkaline phosphatase increased [Recovered/Resolved]
  - Infection [Recovered/Resolved]
  - Bronchitis [Recovered/Resolved]
  - Haemoglobin decreased [Recovered/Resolved]
  - Localised oedema [Recovered/Resolved]
  - Serum ferritin decreased [Recovered/Resolved]
  - Urticaria [Recovered/Resolved]
